FAERS Safety Report 25405225 (Version 1)
Quarter: 2025Q2

REPORT INFORMATION
  Report Type: Spontaneous
  Country: CN (occurrence: CN)
  Receive Date: 20250606
  Receipt Date: 20250606
  Transmission Date: 20250716
  Serious: Yes (Other)
  Sender: STRIDES
  Company Number: CN-STRIDES ARCOLAB LIMITED-2025SP006980

PATIENT
  Age: 67 Year
  Sex: Female

DRUGS (8)
  1. LETROZOLE [Interacting]
     Active Substance: LETROZOLE
     Indication: Hormone receptor positive HER2 negative breast cancer
     Route: 048
     Dates: start: 202207
  2. ABEMACICLIB [Interacting]
     Active Substance: ABEMACICLIB
     Indication: Hormone receptor positive HER2 negative breast cancer
     Route: 048
     Dates: start: 202207
  3. RIVAROXABAN [Concomitant]
     Active Substance: RIVAROXABAN
     Indication: Deep vein thrombosis
     Route: 048
     Dates: start: 202206, end: 202306
  4. RIVAROXABAN [Concomitant]
     Active Substance: RIVAROXABAN
     Route: 048
     Dates: start: 202306
  5. RIVAROXABAN [Concomitant]
     Active Substance: RIVAROXABAN
     Route: 048
     Dates: start: 2023
  6. RIVAROXABAN [Concomitant]
     Active Substance: RIVAROXABAN
     Route: 048
     Dates: start: 202309
  7. FENOFIBRATE [Concomitant]
     Active Substance: FENOFIBRATE
     Indication: Hyperlipidaemia
     Route: 065
  8. PROPAFENONE [Concomitant]
     Active Substance: PROPAFENONE
     Indication: Arrhythmia
     Route: 065

REACTIONS (2)
  - Pulmonary embolism [Unknown]
  - Drug interaction [Unknown]

NARRATIVE: CASE EVENT DATE: 20230101
